FAERS Safety Report 18436472 (Version 1)
Quarter: 2020Q4

REPORT INFORMATION
  Report Type: Spontaneous
  Country: US (occurrence: US)
  Receive Date: 20201028
  Receipt Date: 20201028
  Transmission Date: 20210114
  Serious: Yes (Death)
  Sender: FDA-Public Use
  Company Number: None

PATIENT
  Age: 66 Year
  Sex: Female
  Weight: 110.7 kg

DRUGS (11)
  1. IPRATROPIUM/ALBUTEROL [Concomitant]
     Active Substance: ALBUTEROL\IPRATROPIUM
     Dates: start: 20201005, end: 20201010
  2. ATORVASTATIN 10MG [Concomitant]
     Active Substance: ATORVASTATIN
     Dates: start: 20201005, end: 20201010
  3. CARVEDILOL 6.25MG [Concomitant]
     Active Substance: CARVEDILOL
     Dates: start: 20201005, end: 20201010
  4. LISINOPRIL 10MG [Concomitant]
     Active Substance: LISINOPRIL
     Dates: start: 20201005, end: 20201010
  5. BUMETANIDE 1MG [Concomitant]
     Active Substance: BUMETANIDE
     Dates: start: 20201005, end: 20201010
  6. SODIUM FERRIC GLUCONATE [Suspect]
     Active Substance: SODIUM FERRIC GLUCONATE COMPLEX
     Indication: ANAEMIA
     Route: 041
     Dates: start: 20201008, end: 20201008
  7. CITALOPRAM [Concomitant]
     Active Substance: CITALOPRAM HYDROBROMIDE
     Dates: start: 20201005, end: 20201010
  8. HEPARIN 5000UNITS [Concomitant]
     Active Substance: HEPARIN SODIUM
     Dates: start: 20201005, end: 20201010
  9. ADVAIR HFA 115/21MCG [Concomitant]
     Dates: start: 20201005, end: 20201010
  10. FOLIC ACID 1MG [Concomitant]
     Active Substance: FOLIC ACID
     Dates: start: 20201005, end: 20201010
  11. DOXYCYCLINE 100MG [Concomitant]
     Active Substance: DOXYCYCLINE
     Dates: start: 20201006, end: 20201010

REACTIONS (5)
  - Hypoxia [None]
  - Unresponsive to stimuli [None]
  - Status epilepticus [None]
  - Myoclonus [None]
  - Loss of consciousness [None]

NARRATIVE: CASE EVENT DATE: 20201008
